FAERS Safety Report 6633094-3 (Version None)
Quarter: 2010Q1

REPORT INFORMATION
  Report Type: 
  Country: None (occurrence: None)
  Receive Date: 20100312
  Receipt Date: 20100301
  Transmission Date: 20100710
  Serious: Yes (Other)
  Sender: FDA-Public Use
  Company Number: PHHY2010BR12162

PATIENT
  Sex: Female

DRUGS (2)
  1. DIOVAN [Suspect]
     Dosage: 160 MG
  2. DIOVAN [Suspect]
     Dosage: 80 MG, 1 TABLET AT LUNCH
     Dates: start: 20090901

REACTIONS (3)
  - BLOOD PRESSURE DECREASED [None]
  - DIABETES MELLITUS [None]
  - HEART RATE INCREASED [None]
